FAERS Safety Report 9222455 (Version 1)
Quarter: 2013Q2

REPORT INFORMATION
  Report Type: Spontaneous
  Country: JP (occurrence: JP)
  Receive Date: 20130410
  Receipt Date: 20130410
  Transmission Date: 20140414
  Serious: Yes (Other)
  Sender: FDA-Public Use
  Company Number: JP-MYLANLABS-2013S1007169

PATIENT
  Age: 68 Year
  Sex: Male

DRUGS (6)
  1. CARBOPLATIN [Suspect]
     Indication: LUNG ADENOCARCINOMA
     Route: 041
     Dates: start: 201001
  2. CISPLATIN [Suspect]
     Indication: LUNG ADENOCARCINOMA
     Route: 041
     Dates: start: 200912
  3. PEMETREXED [Suspect]
     Indication: LUNG ADENOCARCINOMA
     Route: 041
     Dates: start: 200912
  4. PEMETREXED [Suspect]
     Indication: LUNG ADENOCARCINOMA
     Route: 041
     Dates: start: 201001
  5. IRESSA [Suspect]
     Indication: LUNG ADENOCARCINOMA
     Route: 048
     Dates: start: 201005
  6. DOCETAXEL [Suspect]
     Indication: LUNG ADENOCARCINOMA
     Route: 041
     Dates: start: 201106

REACTIONS (1)
  - Leukoencephalopathy [Unknown]
